FAERS Safety Report 16756944 (Version 3)
Quarter: 2021Q3

REPORT INFORMATION
  Report Type: Report from Study
  Country: KR (occurrence: KR)
  Receive Date: 20190829
  Receipt Date: 20210907
  Transmission Date: 20211014
  Serious: Yes (Hospitalization)
  Sender: FDA-Public Use
  Company Number: KR-JNJFOC-20190834707

PATIENT
  Weight: 54.8 kg

DRUGS (3)
  1. TRITACE [Concomitant]
     Active Substance: RAMIPRIL
     Dosage: 1.125 MG
     Route: 048
     Dates: start: 20131112
  2. XARELTO [Suspect]
     Active Substance: RIVAROXABAN
     Indication: PRODUCT USED FOR UNKNOWN INDICATION
     Dosage: 15 MG, QD
     Route: 048
     Dates: start: 20190315
  3. DIGOSIN [Concomitant]
     Active Substance: DIGOXIN
     Dosage: 0.125 MG
     Route: 048
     Dates: start: 20131112

REACTIONS (1)
  - Anaemia [Unknown]

NARRATIVE: CASE EVENT DATE: 20190820
